FAERS Safety Report 7998065-3 (Version None)
Quarter: 2011Q4

REPORT INFORMATION
  Report Type: 
  Country: None (occurrence: None)
  Receive Date: 20111221
  Receipt Date: 20101229
  Transmission Date: 20120403
  Serious: No
  Sender: FDA-Public Use
  Company Number: US-GLAXOSMITHKLINE-A0902035A

PATIENT
  Age: 43 Year
  Sex: Female

DRUGS (5)
  1. LEXAPRO [Concomitant]
  2. DIAZEPAM [Concomitant]
  3. CYMBALTA [Concomitant]
  4. SEROQUEL [Concomitant]
  5. LOVAZA [Suspect]
     Indication: BLOOD TRIGLYCERIDES INCREASED
     Dosage: 2CAP PER DAY
     Route: 048
     Dates: start: 20100301, end: 20100901

REACTIONS (1)
  - SKIN ODOUR ABNORMAL [None]
